FAERS Safety Report 11174798 (Version 1)
Quarter: 2015Q2

REPORT INFORMATION
  Report Type: Spontaneous
  Country: US (occurrence: None)
  Receive Date: 20150608
  Receipt Date: 20150608
  Transmission Date: 20150821
  Serious: Yes (Other)
  Sender: FDA-Public Use
  Company Number: None

PATIENT
  Age: 33 Year
  Sex: Male
  Weight: 97.52 kg

DRUGS (18)
  1. METROPROLOL [Concomitant]
     Active Substance: METOPROLOL
  2. QUETIAPINE [Concomitant]
     Active Substance: QUETIAPINE
  3. PREDNISONE. [Concomitant]
     Active Substance: PREDNISONE
  4. VALGANCYCLOVIR [Concomitant]
     Active Substance: VALGANCICLOVIR
  5. ONDANSETRON [Concomitant]
     Active Substance: ONDANSETRON
  6. ASPIRIN. [Concomitant]
     Active Substance: ASPIRIN
  7. MYCOPHENOLIC [Suspect]
     Active Substance: MYCOPHENOLIC ACID
     Indication: PROPHYLAXIS AGAINST TRANSPLANT REJECTION
     Dosage: 1 PITT AT MEALTIME
     Route: 048
     Dates: start: 20150430, end: 20150529
  8. TACROLIMUS. [Concomitant]
     Active Substance: TACROLIMUS
  9. CALC. ACETATE [Concomitant]
  10. CLONODINE [Concomitant]
  11. MIDODRINE [Concomitant]
     Active Substance: MIDODRINE
  12. VIT. D3 [Concomitant]
  13. MISACODYL [Concomitant]
  14. MYCOPHENOLIC [Suspect]
     Active Substance: MYCOPHENOLIC ACID
     Indication: IMMUNOSUPPRESSANT DRUG THERAPY
     Dosage: 1 PITT AT MEALTIME
     Route: 048
     Dates: start: 20150430, end: 20150529
  15. URSODOIL [Concomitant]
  16. VIT. B12 [Concomitant]
  17. MAG OX [Concomitant]
     Active Substance: MAGNESIUM OXIDE
  18. OXYCODONE [Concomitant]
     Active Substance: OXYCODONE

REACTIONS (6)
  - Vomiting [None]
  - Weight decreased [None]
  - Decreased appetite [None]
  - Product solubility abnormal [None]
  - Nausea [None]
  - Product quality issue [None]

NARRATIVE: CASE EVENT DATE: 20150602
